FAERS Safety Report 7240058-8 (Version None)
Quarter: 2011Q1

REPORT INFORMATION
  Report Type: 
  Country: None (occurrence: None)
  Receive Date: 20110124
  Receipt Date: 20101228
  Transmission Date: 20110831
  Serious: No
  Sender: FDA-Public Use
  Company Number: US-BIOGENIDEC-2010BI045202

PATIENT
  Sex: Female

DRUGS (2)
  1. AVONEX [Suspect]
     Route: 064
     Dates: start: 19991001
  2. AVONEX [Suspect]
     Indication: DRUG EXPOSURE DURING PREGNANCY
     Route: 064
     Dates: end: 20101204

REACTIONS (5)
  - POOR WEIGHT GAIN NEONATAL [None]
  - GASTROOESOPHAGEAL REFLUX DISEASE [None]
  - INFLAMMATION [None]
  - EAR INFECTION [None]
  - CLOSTRIDIAL INFECTION [None]
